FAERS Safety Report 6389608-4 (Version None)
Quarter: 2009Q4

REPORT INFORMATION
  Report Type: 
  Country: None (occurrence: None)
  Receive Date: 20091002
  Receipt Date: 20091002
  Transmission Date: 20100525
  Serious: Yes (Hospitalization)
  Sender: FDA-Public Use
  Company Number: None

PATIENT
  Age: 52 Year
  Sex: Male

DRUGS (2)
  1. PEGINTERFERON [Suspect]
     Indication: HEPATITIS C
     Dosage: 180 MCG QWEEK SQ
     Route: 058
     Dates: start: 20081024, end: 20090123
  2. RIBAVIRIN [Suspect]
     Indication: HEPATITIS C
     Dosage: 400 MG BID PO
     Route: 048
     Dates: start: 20081024, end: 20090123

REACTIONS (4)
  - DIARRHOEA [None]
  - MYALGIA [None]
  - NAUSEA [None]
  - VOMITING [None]
